FAERS Safety Report 4360783-6 (Version None)
Quarter: 2004Q2

REPORT INFORMATION
  Report Type: 
  Country: None (occurrence: None)
  Receive Date: 20040517
  Receipt Date: 20040511
  Transmission Date: 20050107
  Serious: Yes (Other)
  Sender: FDA-Public Use
  Company Number: 2004212842US

PATIENT
  Age: 55 Year
  Sex: Female

DRUGS (7)
  1. PROVERA [Suspect]
     Indication: HORMONE REPLACEMENT THERAPY
     Dates: start: 19930901, end: 19990924
  2. PROMETRIUM [Suspect]
     Indication: HORMONE REPLACEMENT THERAPY
     Dates: start: 19990716, end: 19991201
  3. ESTRATEST [Suspect]
  4. PREMARIN [Suspect]
  5. ESTRACE [Suspect]
  6. ESTRADIOL [Suspect]
  7. PREMPRO [Suspect]

REACTIONS (1)
  - BREAST CANCER FEMALE [None]
